FAERS Safety Report 8314455 (Version 4)
Quarter: 2012Q4

REPORT INFORMATION
  Report Type: Report from Study
  Country: PL (occurrence: PL)
  Receive Date: 20111228
  Receipt Date: 20120907
  Transmission Date: 20130627
  Serious: Yes (Hospitalization, Other)
  Sender: FDA-Public Use
  Company Number: PL-ROCHE-1022108

PATIENT
  Age: 52 Year
  Sex: Female
  Weight: 68 kg

DRUGS (9)
  1. MIRCERA [Suspect]
     Indication: RENAL FAILURE CHRONIC
     Route: 058
     Dates: start: 20110812
  2. MIRCERA [Suspect]
     Route: 058
     Dates: start: 20111010
  3. MIRCERA [Suspect]
     Route: 058
     Dates: start: 20111107, end: 20111212
  4. OMEPRAZOLE [Concomitant]
     Route: 065
     Dates: start: 20070715
  5. CALCIUM CARBONATE [Concomitant]
     Route: 065
     Dates: start: 20060524
  6. SIMVASTATIN [Concomitant]
     Route: 065
     Dates: start: 20090815
  7. ACETYLSALICYLIC ACID [Concomitant]
     Route: 065
     Dates: start: 20090615
  8. FUROSEMIDE [Concomitant]
     Route: 065
     Dates: start: 20060524
  9. VITAMIN B COMPLEX [Concomitant]
     Route: 065
     Dates: start: 20090615

REACTIONS (4)
  - Haemoglobin decreased [Not Recovered/Not Resolved]
  - Pruritus [Unknown]
  - Rash [Unknown]
  - Anaemia [Recovered/Resolved with Sequelae]
